FAERS Safety Report 7013045-2 (Version None)
Quarter: 2010Q3

REPORT INFORMATION
  Report Type: 
  Country: None (occurrence: None)
  Receive Date: 20100924
  Receipt Date: 20100916
  Transmission Date: 20110219
  Serious: Yes (Other)
  Sender: FDA-Public Use
  Company Number: US-PFIZER INC-2010118252

PATIENT
  Sex: Male

DRUGS (3)
  1. LIPITOR [Suspect]
     Indication: BLOOD CHOLESTEROL INCREASED
     Dosage: 40 MG, DAILY
     Route: 048
  2. NIACIN [Interacting]
     Indication: BLOOD CHOLESTEROL DECREASED
     Dosage: UNK
     Dates: start: 20090101
  3. NIACIN [Interacting]
     Indication: HIGH DENSITY LIPOPROTEIN DECREASED

REACTIONS (5)
  - AUTOIMMUNE THYROIDITIS [None]
  - BLOOD CHOLESTEROL DECREASED [None]
  - DRUG INTERACTION [None]
  - HIGH DENSITY LIPOPROTEIN DECREASED [None]
  - SKIN REACTION [None]
